FAERS Safety Report 13292450 (Version 1)
Quarter: 2017Q1

REPORT INFORMATION
  Report Type: Spontaneous
  Country: US (occurrence: US)
  Receive Date: 20170303
  Receipt Date: 20170303
  Transmission Date: 20170428
  Serious: Yes (Hospitalization)
  Sender: FDA-Public Use
  Company Number: None

PATIENT
  Sex: Male
  Weight: 82.63 kg

DRUGS (1)
  1. TASIGNA [Suspect]
     Active Substance: NILOTINIB
     Indication: CHRONIC MYELOID LEUKAEMIA
     Dosage: 150MG CAPSULES 2 BID BY MOUTH
     Route: 048
     Dates: start: 201611, end: 201703

REACTIONS (4)
  - Dysarthria [None]
  - Feeling abnormal [None]
  - Memory impairment [None]
  - Diplopia [None]
